FAERS Safety Report 17976909 (Version 1)
Quarter: 2020Q3

REPORT INFORMATION
  Report Type: Other
  Country: DK (occurrence: DK)
  Receive Date: 20200703
  Receipt Date: 20200703
  Transmission Date: 20201103
  Serious: Yes (Other)
  Sender: FDA-Public Use
  Company Number: DK-CELLTRION INC.-2020DK023814

PATIENT

DRUGS (1)
  1. REMSIMA [Suspect]
     Active Substance: INFLIXIMAB
     Indication: SPONDYLITIS
     Dosage: 250 MG EVERY 6 WEEKS
     Route: 042
     Dates: start: 20170303, end: 20171219

REACTIONS (6)
  - Abdominal pain upper [Unknown]
  - Underdose [Unknown]
  - Alanine aminotransferase increased [Recovered/Resolved]
  - Diarrhoea [Unknown]
  - Autoimmune hepatitis [Recovered/Resolved]
  - Faeces discoloured [Unknown]

NARRATIVE: CASE EVENT DATE: 20171030
